FAERS Safety Report 21137883 (Version 2)
Quarter: 2022Q3

REPORT INFORMATION
  Report Type: Spontaneous
  Country: GB (occurrence: GB)
  Receive Date: 20220727
  Receipt Date: 20220727
  Transmission Date: 20221027
  Serious: No
  Sender: FDA-Public Use
  Company Number: GB-MLMSERVICE-20220628-3624466-2

PATIENT
  Age: 67 Year
  Sex: Male

DRUGS (5)
  1. MORPHINE SULFATE [Suspect]
     Active Substance: MORPHINE SULFATE
     Dosage: 35 MG, DAILY
     Route: 058
  2. MIDAZOLAM [Suspect]
     Active Substance: MIDAZOLAM
     Dosage: 30 MG, DAILY
     Route: 058
  3. ESOMEPRAZOLE [Suspect]
     Active Substance: ESOMEPRAZOLE
     Indication: Melaena
     Dosage: 20 MG, DAILY
     Route: 058
  4. CYCLIZINE [Suspect]
     Active Substance: CYCLIZINE
     Dosage: 150 MG, DAILY
     Route: 058
  5. DEXAMETHASONE [Concomitant]
     Active Substance: DEXAMETHASONE
     Dosage: 6.6 MG, 1X/DAY
     Route: 058

REACTIONS (1)
  - Injection site pain [Unknown]
